FAERS Safety Report 4554426-6 (Version None)
Quarter: 2004Q4

REPORT INFORMATION
  Report Type: 
  Country: None (occurrence: None)
  Receive Date: 20041222
  Receipt Date: 20040928
  Transmission Date: 20050328
  Serious: Yes (Hospitalization)
  Sender: FDA-Public Use
  Company Number: 381759

PATIENT
  Age: 60 Year
  Sex: Female

DRUGS (1)
  1. COPEGUS [Suspect]
     Dosage: ORAL

REACTIONS (1)
  - DIARRHOEA [None]
